FAERS Safety Report 25465030 (Version 1)
Quarter: 2025Q2

REPORT INFORMATION
  Report Type: Spontaneous
  Country: US (occurrence: US)
  Receive Date: 20250622
  Receipt Date: 20250622
  Transmission Date: 20250716
  Serious: No
  Sender: INSUD PHARMA
  Company Number: US-INSUD PHARMA-2506US04778

PATIENT

DRUGS (7)
  1. SLYND [Suspect]
     Active Substance: DROSPIRENONE
     Indication: Product used for unknown indication
     Dosage: 4 MILLIGRAM, QD
     Route: 048
     Dates: end: 202506
  2. LAMICTAL [Concomitant]
     Active Substance: LAMOTRIGINE
     Indication: Product used for unknown indication
  3. TOPAMAX [Concomitant]
     Active Substance: TOPIRAMATE
     Indication: Product used for unknown indication
  4. ASPIRIN [Concomitant]
     Active Substance: ASPIRIN
     Indication: Product used for unknown indication
  5. PAXIL [Concomitant]
     Active Substance: PAROXETINE HYDROCHLORIDE
     Indication: Product used for unknown indication
  6. DIFLUCAN [Concomitant]
     Active Substance: FLUCONAZOLE
     Indication: Vaginal infection
  7. DIFLUCAN [Concomitant]
     Active Substance: FLUCONAZOLE
     Indication: Herpes simplex

REACTIONS (1)
  - Superficial vein thrombosis [Unknown]
